FAERS Safety Report 24897482 (Version 2)
Quarter: 2025Q1

REPORT INFORMATION
  Report Type: Spontaneous
  Country: US (occurrence: US)
  Receive Date: 20250129
  Receipt Date: 20250210
  Transmission Date: 20250409
  Serious: No
  Sender: NOVARTIS
  Company Number: US-002147023-NVSC2025US012097

PATIENT
  Age: 81 Year
  Sex: Female
  Weight: 70.31 kg

DRUGS (1)
  1. LEQVIO [Suspect]
     Active Substance: INCLISIRAN SODIUM
     Indication: Low density lipoprotein increased
     Route: 058
     Dates: start: 20250121, end: 20250121

REACTIONS (1)
  - Syringe issue [Recovered/Resolved]

NARRATIVE: CASE EVENT DATE: 20250121
